FAERS Safety Report 7592121-X (Version None)
Quarter: 2011Q3

REPORT INFORMATION
  Report Type: 
  Country: None (occurrence: None)
  Receive Date: 20110706
  Receipt Date: 20110627
  Transmission Date: 20111222
  Serious: Yes (Life-Threatening, Other)
  Sender: FDA-Public Use
  Company Number: US-BAYER-2011-004893

PATIENT
  Age: 29 Year
  Sex: Female
  Weight: 63.492 kg

DRUGS (1)
  1. YASMIN [Suspect]
     Dosage: UNK
     Dates: start: 20040101, end: 20060204

REACTIONS (3)
  - PAIN [None]
  - DEEP VEIN THROMBOSIS [None]
  - THROMBOSIS [None]
